FAERS Safety Report 18681599 (Version 2)
Quarter: 2021Q1

REPORT INFORMATION
  Report Type: Report from Study
  Country: US (occurrence: US)
  Receive Date: 20201230
  Receipt Date: 20210125
  Transmission Date: 20210419
  Serious: Yes (Other)
  Sender: FDA-Public Use
  Company Number: US-GILEAD-2020-0510369

PATIENT
  Age: 23 Year
  Sex: Female

DRUGS (5)
  1. PROAIR HFA [Concomitant]
     Active Substance: ALBUTEROL SULFATE
  2. DULERA [Concomitant]
     Active Substance: FORMOTEROL FUMARATE DIHYDRATE\MOMETASONE FUROATE
  3. AZTREONAM LYSINE [Suspect]
     Active Substance: AZTREONAM LYSINE
     Indication: CYSTIC FIBROSIS
     Dosage: 75 MG, TID, FOR 28 DAYS ON, THEN 28 DAYS OFF
     Route: 055
  4. TRIKAFTA [Concomitant]
     Active Substance: ELEXACAFTOR\IVACAFTOR\TEZACAFTOR
     Dosage: TAKE 2 ORANGE TABLETS IN THE MORNING AND 1 BLUE TABLET IN THE EVENING
  5. MONTELUKAST SODIUM. [Concomitant]
     Active Substance: MONTELUKAST SODIUM

REACTIONS (2)
  - Infection [Unknown]
  - Cystic fibrosis [Not Recovered/Not Resolved]

NARRATIVE: CASE EVENT DATE: 20210113
